FAERS Safety Report 9942878 (Version 2)
Quarter: 2016Q1

REPORT INFORMATION
  Report Type: Report from Study
  Country: US (occurrence: US)
  Receive Date: 20140303
  Receipt Date: 20160125
  Transmission Date: 20160526
  Serious: No
  Sender: FDA-Public Use
  Company Number: US-ABBVIE-13P-163-1044520-00

PATIENT
  Age: 42 Year
  Sex: Female

DRUGS (6)
  1. HUMIRA [Interacting]
     Active Substance: ADALIMUMAB
     Route: 065
     Dates: start: 201302
  2. FLEXERIL [Concomitant]
     Active Substance: CYCLOBENZAPRINE HYDROCHLORIDE
     Indication: MUSCLE SPASMS
     Dosage: BUT TAKES ONLY 1 TAB AS NEEDED
  3. OMEPRAZOL [Concomitant]
     Active Substance: OMEPRAZOLE
     Indication: GASTROOESOPHAGEAL REFLUX DISEASE
  4. PHENAZOPYRIDINE. [Concomitant]
     Active Substance: PHENAZOPYRIDINE
     Indication: AUTOMATIC BLADDER
     Dosage: AT BEDTIME AS NEEDED
  5. CORTISONE [Interacting]
     Active Substance: CORTISONE\HYDROCORTISONE
     Indication: PRODUCT USED FOR UNKNOWN INDICATION
     Route: 065
  6. HUMIRA [Suspect]
     Active Substance: ADALIMUMAB
     Indication: PSORIATIC ARTHROPATHY
     Route: 065
     Dates: start: 20110824, end: 20121210

REACTIONS (8)
  - Drug interaction [Unknown]
  - Hypoaesthesia [Recovering/Resolving]
  - Hypoaesthesia [Unknown]
  - Paraesthesia [Recovering/Resolving]
  - Colitis [Unknown]
  - Arthralgia [Recovering/Resolving]
  - Psoriatic arthropathy [Unknown]
  - Psoriasis [Unknown]

NARRATIVE: CASE EVENT DATE: 201108
